FAERS Safety Report 9817173 (Version 2)
Quarter: 2014Q1

REPORT INFORMATION
  Report Type: Spontaneous
  Country: US (occurrence: US)
  Receive Date: 20140114
  Receipt Date: 20140214
  Transmission Date: 20141002
  Serious: Yes (Hospitalization)
  Sender: FDA-Public Use
  Company Number: US-GILEAD-2014-0092145

PATIENT
  Age: 69 Year
  Sex: Female

DRUGS (3)
  1. LETAIRIS [Suspect]
     Indication: PRODUCT USED FOR UNKNOWN INDICATION
     Dosage: 10 MG, QD
     Route: 048
     Dates: start: 20110103
  2. REMODULIN [Concomitant]
  3. RIOCIGUAT [Concomitant]

REACTIONS (4)
  - Cystitis [Unknown]
  - Vomiting projectile [Unknown]
  - Fatigue [Unknown]
  - Fatigue [Unknown]
